FAERS Safety Report 4306671-2 (Version None)
Quarter: 2004Q1

REPORT INFORMATION
  Report Type: 
  Country: None (occurrence: None)
  Receive Date: 20040225
  Receipt Date: 20031105
  Transmission Date: 20041129
  Serious: No
  Sender: FDA-Public Use
  Company Number: US-BRISTOL-MYERS SQUIBB COMPANY-12440319

PATIENT
  Sex: Male

DRUGS (1)
  1. EXCEDRIN ES TABS [Suspect]
     Dates: start: 20031101

REACTIONS (3)
  - NASAL CONGESTION [None]
  - OROPHARYNGEAL SWELLING [None]
  - SNEEZING [None]
